FAERS Safety Report 6176334-X (Version None)
Quarter: 2009Q2

REPORT INFORMATION
  Report Type: 
  Country: None (occurrence: None)
  Receive Date: 20090501
  Receipt Date: 20090422
  Transmission Date: 20091009
  Serious: Yes (Hospitalization)
  Sender: FDA-Public Use
  Company Number: US-BIOGENIDEC-2006BI007625

PATIENT
  Age: 70 Year
  Sex: Female
  Weight: 45 kg

DRUGS (6)
  1. AVONEX [Suspect]
     Indication: MULTIPLE SCLEROSIS
     Route: 030
     Dates: start: 20000101, end: 20040225
  2. AVONEX [Suspect]
     Route: 030
     Dates: start: 20040301
  3. HYDROCODONE BITARTRATE [Concomitant]
     Indication: BACK PAIN
  4. CLARITIN [Concomitant]
     Indication: SEASONAL ALLERGY
  5. CLARITIN [Concomitant]
     Indication: HOUSE DUST ALLERGY
  6. FISH OIL [Concomitant]
     Indication: ANAEMIA

REACTIONS (9)
  - ABASIA [None]
  - ANAEMIA [None]
  - COLITIS COLLAGENOUS [None]
  - DEHYDRATION [None]
  - FATIGUE [None]
  - GASTROENTERITIS BACTERIAL [None]
  - IMMUNE SYSTEM DISORDER [None]
  - MUSCLE SPASMS [None]
  - PAIN IN EXTREMITY [None]
